FAERS Safety Report 5176478-5 (Version None)
Quarter: 2006Q4

REPORT INFORMATION
  Report Type: 
  Country: None (occurrence: None)
  Receive Date: 20061207
  Receipt Date: 20061124
  Transmission Date: 20070319
  Serious: Yes (Hospitalization)
  Sender: FDA-Public Use
  Company Number: A-CH2006-13675

PATIENT
  Age: 62 Year
  Sex: Male

DRUGS (12)
  1. TRACLEER [Suspect]
     Indication: PULMONARY HYPERTENSION
     Dosage: 125 MG, BID, ORAL, SEE IMAGE
     Route: 048
     Dates: end: 20061117
  2. TRACLEER [Suspect]
     Indication: PULMONARY HYPERTENSION
     Dosage: 125 MG, BID, ORAL, SEE IMAGE
     Route: 048
     Dates: start: 20061118, end: 20061120
  3. TRACLEER [Suspect]
     Indication: PULMONARY HYPERTENSION
     Dosage: 125 MG, BID, ORAL, SEE IMAGE
     Route: 048
     Dates: start: 20060301
  4. ENALAPRIL MALEATE [Concomitant]
  5. FUROSEMIDE [Concomitant]
  6. ESPIRONOLACTONA (SPIRONOLACTONE) [Concomitant]
  7. ACENOCOUMAROL [Concomitant]
  8. ALLOPURINOL SODIUM [Concomitant]
  9. METFORMIN HCL [Concomitant]
  10. SIMVASTATIN [Concomitant]
  11. DIGOXIN [Concomitant]
  12. FOLIC ACID [Concomitant]

REACTIONS (4)
  - PANCREATITIS HAEMORRHAGIC [None]
  - PANCREATITIS NECROTISING [None]
  - RENAL FAILURE [None]
  - RESPIRATORY FAILURE [None]
